FAERS Safety Report 9300783 (Version 1)
Quarter: 2013Q2

REPORT INFORMATION
  Report Type: Spontaneous
  Country: US (occurrence: None)
  Receive Date: 20130520
  Receipt Date: 20130520
  Transmission Date: 20140414
  Serious: Yes (Other)
  Sender: FDA-Public Use
  Company Number: None

PATIENT
  Age: 48 Year
  Sex: Male
  Weight: 91.63 kg

DRUGS (1)
  1. SUBOXONE [Suspect]
     Indication: DEPENDENCE
     Route: 060
     Dates: start: 20130411, end: 20130515

REACTIONS (8)
  - Discomfort [None]
  - Muscle tightness [None]
  - Confusional state [None]
  - Hallucination [None]
  - Headache [None]
  - Tremor [None]
  - Abnormal dreams [None]
  - Memory impairment [None]
